FAERS Safety Report 8264890-7 (Version None)
Quarter: 2012Q2

REPORT INFORMATION
  Report Type: 
  Country: None (occurrence: None)
  Receive Date: 20120406
  Receipt Date: 20120326
  Transmission Date: 20120825
  Serious: Yes (Hospitalization)
  Sender: FDA-Public Use
  Company Number: IE-SANOFI-AVENTIS-2012SA015600

PATIENT
  Sex: Female

DRUGS (5)
  1. ASPIRIN [Concomitant]
  2. PANTOPRAZOLE [Concomitant]
  3. MULTAQ [Suspect]
     Indication: ATRIAL FIBRILLATION
     Route: 048
     Dates: start: 20120208, end: 20120305
  4. QUININE SULFATE [Concomitant]
     Dates: end: 20120201
  5. ZIMOVANE [Concomitant]

REACTIONS (1)
  - HYPERTHYROIDISM [None]
